FAERS Safety Report 13277357 (Version 4)
Quarter: 2018Q1

REPORT INFORMATION
  Report Type: Spontaneous
  Country: US (occurrence: US)
  Receive Date: 20170228
  Receipt Date: 20180309
  Transmission Date: 20180508
  Serious: Yes (Hospitalization, Disabling, Other)
  Sender: FDA-Public Use
  Company Number: US-009507513-1702USA011520

PATIENT
  Sex: Female
  Weight: 136.5 kg

DRUGS (1)
  1. NUVARING [Suspect]
     Active Substance: ETHINYL ESTRADIOL\ETONOGESTREL
     Indication: CONTRACEPTION
     Dosage: UNK
     Route: 067
     Dates: start: 201309, end: 20140301

REACTIONS (17)
  - Arthralgia [Unknown]
  - Abdominal distension [Unknown]
  - Mitral valve incompetence [Unknown]
  - Peripheral venous disease [Unknown]
  - Hypoaesthesia [Unknown]
  - Uterine haemorrhage [Unknown]
  - Deep vein thrombosis [Recovered/Resolved]
  - Bundle branch block right [Unknown]
  - Flank pain [Unknown]
  - Pulmonary embolism [Recovered/Resolved]
  - Weight increased [Unknown]
  - Cholecystectomy [Unknown]
  - Tricuspid valve incompetence [Unknown]
  - Vaginal haemorrhage [Recovered/Resolved]
  - Haemorrhagic anaemia [Recovered/Resolved]
  - Hyperoestrogenism [Unknown]
  - Back pain [Unknown]

NARRATIVE: CASE EVENT DATE: 201402
